FAERS Safety Report 7814044-0 (Version None)
Quarter: 2011Q4

REPORT INFORMATION
  Report Type: 
  Country: None (occurrence: None)
  Receive Date: 20111014
  Receipt Date: 20111003
  Transmission Date: 20120403
  Serious: Yes (Other)
  Sender: FDA-Public Use
  Company Number: CA-JNJFOC-20111002244

PATIENT
  Sex: Male
  Weight: 28 kg

DRUGS (5)
  1. REMICADE [Suspect]
     Route: 042
     Dates: start: 20090801
  2. SOLU-CORTEF [Concomitant]
     Indication: PREMEDICATION
     Route: 042
  3. BENADRYL [Concomitant]
     Indication: PREMEDICATION
     Route: 042
  4. REMICADE [Suspect]
     Indication: CROHN'S DISEASE
     Route: 042
     Dates: start: 20111003
  5. TYLENOL-500 [Concomitant]
     Indication: PREMEDICATION
     Route: 048

REACTIONS (3)
  - CROHN'S DISEASE [None]
  - NAUSEA [None]
  - INFUSION RELATED REACTION [None]
